FAERS Safety Report 12294420 (Version 2)
Quarter: 2016Q2

REPORT INFORMATION
  Report Type: Spontaneous
  Country: FR (occurrence: FR)
  Receive Date: 20160422
  Receipt Date: 20160510
  Transmission Date: 20160815
  Serious: Yes (Death)
  Sender: FDA-Public Use
  Company Number: FR-HOSPIRA-3260073

PATIENT
  Sex: Female

DRUGS (5)
  1. CISATRACURIUM BESILATE [Suspect]
     Active Substance: CISATRACURIUM BESYLATE
     Indication: COMPLETED SUICIDE
  2. ATRACURIUM BESILATE [Suspect]
     Active Substance: ATRACURIUM BESYLATE
     Indication: COMPLETED SUICIDE
  3. PROPOFOL. [Suspect]
     Active Substance: PROPOFOL
     Indication: COMPLETED SUICIDE
  4. MIDAZOLAM [Suspect]
     Active Substance: MIDAZOLAM\MIDAZOLAM HYDROCHLORIDE
     Indication: COMPLETED SUICIDE
  5. AMIODARONE [Suspect]
     Active Substance: AMIODARONE
     Indication: COMPLETED SUICIDE

REACTIONS (5)
  - Respiratory failure [Fatal]
  - Cardiogenic shock [Fatal]
  - Coma [Fatal]
  - Hypotension [Fatal]
  - Toxicity to various agents [Fatal]
